FAERS Safety Report 13923701 (Version 2)
Quarter: 2017Q3

REPORT INFORMATION
  Report Type: Spontaneous
  Country: US (occurrence: US)
  Receive Date: 20170831
  Receipt Date: 20170831
  Transmission Date: 20171127
  Serious: Yes (Other)
  Sender: FDA-Public Use
  Company Number: US-TEVA-800621ACC

PATIENT
  Age: 29 Year
  Sex: Female
  Weight: 85.35 kg

DRUGS (1)
  1. PARAGARD T 380A [Suspect]
     Active Substance: COPPER
     Indication: CONTRACEPTION
     Dates: start: 20121008, end: 20170816

REACTIONS (6)
  - Muscle spasms [Unknown]
  - Device breakage [Not Recovered/Not Resolved]
  - Device dislocation [Recovered/Resolved]
  - Complication associated with device [Unknown]
  - Pain [Not Recovered/Not Resolved]
  - Embedded device [Not Recovered/Not Resolved]

NARRATIVE: CASE EVENT DATE: 20170809
